FAERS Safety Report 8047607-0 (Version None)
Quarter: 2012Q1

REPORT INFORMATION
  Report Type: 
  Country: None (occurrence: None)
  Receive Date: 20120116
  Receipt Date: 20120110
  Transmission Date: 20120608
  Serious: Yes (Hospitalization)
  Sender: FDA-Public Use
  Company Number: US-GLAXOSMITHKLINE-B0752830A

PATIENT
  Age: 64 Year
  Sex: Male
  Weight: 109.5 kg

DRUGS (7)
  1. DILTIAZEM HCL [Concomitant]
  2. PREVACID [Concomitant]
  3. GLYBURIDE [Concomitant]
  4. LOTENSIN [Concomitant]
  5. HUMULIN R [Concomitant]
  6. AVANDIA [Suspect]
     Indication: DIABETES MELLITUS
     Dosage: 8MG FOUR TIMES PER DAY
     Route: 048
     Dates: start: 19990101, end: 20050101
  7. NORTRIPTYLINE HCL [Concomitant]

REACTIONS (3)
  - CEREBROVASCULAR ACCIDENT [None]
  - MYOCARDIAL INFARCTION [None]
  - CARDIAC FAILURE CONGESTIVE [None]
